FAERS Safety Report 25437941 (Version 2)
Quarter: 2025Q2

REPORT INFORMATION
  Report Type: Spontaneous
  Country: FR (occurrence: FR)
  Receive Date: 20250616
  Receipt Date: 20250630
  Transmission Date: 20250716
  Serious: Yes (Other)
  Sender: SANDOZ
  Company Number: FR-002147023-NVSC2019FR075723

PATIENT
  Age: 13 Month
  Sex: Female

DRUGS (21)
  1. ACTINOMYCIN D [Suspect]
     Active Substance: DACTINOMYCIN
     Indication: Benign lung neoplasm
     Dosage: D1,Q3W
     Route: 065
     Dates: start: 201604, end: 201609
  2. ACTINOMYCIN D [Suspect]
     Active Substance: DACTINOMYCIN
     Indication: Benign lung neoplasm
     Dosage: UNK UNK, Q3W
     Route: 065
     Dates: start: 201604, end: 201609
  3. BEVACIZUMAB [Suspect]
     Active Substance: BEVACIZUMAB
     Indication: Benign lung neoplasm
     Dosage: UNK, Q2W
     Route: 065
  4. BEVACIZUMAB [Suspect]
     Active Substance: BEVACIZUMAB
     Indication: Benign lung neoplasm
     Route: 042
     Dates: start: 201807, end: 201807
  5. BEVACIZUMAB [Suspect]
     Active Substance: BEVACIZUMAB
     Route: 042
  6. CYCLOPHOSPHAMIDE [Suspect]
     Active Substance: CYCLOPHOSPHAMIDE
     Indication: Neoplasm
     Dosage: UNK, QD
     Route: 065
     Dates: start: 201702, end: 201705
  7. IFOSFAMIDE [Suspect]
     Active Substance: IFOSFAMIDE
     Indication: Benign lung neoplasm
     Dosage: UNK UNK, Q3W
     Route: 065
     Dates: start: 201604, end: 201609
  8. IFOSFAMIDE [Suspect]
     Active Substance: IFOSFAMIDE
     Indication: Benign lung neoplasm
     Dosage: UNK, Q3W
     Route: 065
     Dates: start: 201604, end: 201609
  9. IRINOTECAN HYDROCHLORIDE [Suspect]
     Active Substance: IRINOTECAN HYDROCHLORIDE
     Indication: Benign lung neoplasm
     Dosage: DAY 1 - D5, Q3W
     Route: 042
     Dates: start: 201604, end: 201609
  10. IRINOTECAN HYDROCHLORIDE [Suspect]
     Active Substance: IRINOTECAN HYDROCHLORIDE
     Indication: Benign lung neoplasm
     Dosage: UNK, Q3W
     Route: 042
     Dates: start: 201604, end: 201609
  11. NAVELBINE [Suspect]
     Active Substance: VINORELBINE TARTRATE
     Indication: Neoplasm
     Dosage: 1 DF, QD
     Route: 065
     Dates: start: 201702, end: 201705
  12. TEMOZOLOMIDE [Suspect]
     Active Substance: TEMOZOLOMIDE
     Indication: Benign lung neoplasm
     Dosage: UNK, QMO
     Route: 065
  13. TEMOZOLOMIDE [Suspect]
     Active Substance: TEMOZOLOMIDE
     Route: 065
  14. TEMOZOLOMIDE [Suspect]
     Active Substance: TEMOZOLOMIDE
     Route: 042
     Dates: start: 201604, end: 201609
  15. TEMOZOLOMIDE [Suspect]
     Active Substance: TEMOZOLOMIDE
     Indication: Benign lung neoplasm
     Route: 042
     Dates: start: 201801, end: 201807
  16. TOPOTECAN [Suspect]
     Active Substance: TOPOTECAN HYDROCHLORIDE
     Indication: Benign lung neoplasm
     Dosage: UNK UNK, QMO
     Route: 065
  17. TOPOTECAN [Suspect]
     Active Substance: TOPOTECAN HYDROCHLORIDE
     Indication: Benign lung neoplasm
     Route: 042
     Dates: start: 201801, end: 201801
  18. TOPOTECAN [Suspect]
     Active Substance: TOPOTECAN HYDROCHLORIDE
     Route: 065
  19. VINCRISTINE [Suspect]
     Active Substance: VINCRISTINE
     Indication: Benign lung neoplasm
     Dosage: D1, Q3W
     Route: 065
     Dates: start: 201604, end: 201609
  20. VINCRISTINE [Suspect]
     Active Substance: VINCRISTINE
     Indication: Benign lung neoplasm
     Dosage: UNK (D1, Q3W )
     Route: 065
     Dates: start: 201604, end: 201609
  21. YONDELIS [Suspect]
     Active Substance: TRABECTEDIN
     Indication: Product used for unknown indication
     Dosage: UNK, Q3W
     Route: 065
     Dates: start: 201705, end: 201711

REACTIONS (6)
  - Neutropenia [Not Recovered/Not Resolved]
  - Nausea [Not Recovered/Not Resolved]
  - Vomiting [Not Recovered/Not Resolved]
  - Product use in unapproved indication [Unknown]
  - Toxicity to various agents [Unknown]
  - Renal disorder [Unknown]

NARRATIVE: CASE EVENT DATE: 20160101
